FAERS Safety Report 9741187 (Version 1)
Quarter: 2013Q4

REPORT INFORMATION
  Report Type: Spontaneous
  Country: BR (occurrence: BR)
  Receive Date: 20131209
  Receipt Date: 20131209
  Transmission Date: 20140711
  Serious: Yes (Other)
  Sender: FDA-Public Use
  Company Number: BR-ASTRAZENECA-2013SE88346

PATIENT
  Age: 74 Year
  Sex: Female
  Weight: 70 kg

DRUGS (6)
  1. ATACAND HCT [Suspect]
     Indication: HYPERTENSION
     Dosage: 16 + 12.5 MG DAILY
     Route: 048
     Dates: start: 2001
  2. OMEPRAZOLE [Suspect]
     Indication: OESOPHAGITIS
     Dosage: UNKNOWN DOSE TWO TIMES A DAY
     Route: 048
     Dates: start: 201206
  3. PREDSIM [Suspect]
     Indication: FIBROMYALGIA
     Dosage: UNKNOWN DOSE DAILY
     Route: 048
     Dates: start: 2012
  4. ZYLORIC [Concomitant]
     Indication: BLOOD URIC ACID INCREASED
     Dosage: UNKNOWN DOSE DAILY
     Route: 048
     Dates: start: 1998
  5. DOMPERIDONE [Concomitant]
     Indication: OESOPHAGITIS
     Dosage: UNKNOWN DOSE TWO TIMES A DAY
     Route: 048
     Dates: start: 201206
  6. RIVOTRIL [Concomitant]
     Indication: ANXIETY
     Dosage: UNKNOWN DOSE AS REQUIRED
     Route: 048
     Dates: start: 2012

REACTIONS (5)
  - Fibromyalgia [Recovered/Resolved]
  - Oesophagitis [Recovered/Resolved]
  - Anxiety [Recovered/Resolved]
  - Weight increased [Unknown]
  - Off label use [Not Recovered/Not Resolved]
